FAERS Safety Report 12201370 (Version 1)
Quarter: 2016Q1

REPORT INFORMATION
  Report Type: Spontaneous
  Country: US (occurrence: US)
  Receive Date: 20160322
  Receipt Date: 20160322
  Transmission Date: 20160526
  Serious: No
  Sender: FDA-Public Use
  Company Number: US-SA-2015SA022650

PATIENT
  Age: 79 Year
  Sex: Female

DRUGS (1)
  1. NASACORT ALLERGY 24HR [Suspect]
     Active Substance: TRIAMCINOLONE ACETONIDE
     Indication: UPPER-AIRWAY COUGH SYNDROME
     Dosage: START DATE: ABOUT 30 DAYS AGO?DOSE: 1 SPRAY PER NOSTRIL
     Route: 065

REACTIONS (2)
  - Rhinorrhoea [Unknown]
  - Drug ineffective [Unknown]
